FAERS Safety Report 17930183 (Version 2)
Quarter: 2020Q3

REPORT INFORMATION
  Report Type: Report from Study
  Country: None (occurrence: US)
  Receive Date: 20200623
  Receipt Date: 20200730
  Transmission Date: 20201103
  Serious: Yes (Other)
  Sender: FDA-Public Use
  Company Number: US-ABBVIE-20K-163-3448948-00

PATIENT
  Sex: Female

DRUGS (1)
  1. HUMIRA [Suspect]
     Active Substance: ADALIMUMAB
     Indication: UVEITIS
     Dosage: CITRATE FREE
     Route: 058
     Dates: start: 20200311

REACTIONS (7)
  - Immune system disorder [Unknown]
  - General physical health deterioration [Unknown]
  - Psoriasis [Unknown]
  - Peripheral venous disease [Unknown]
  - Peripheral swelling [Unknown]
  - Neoplasm [Unknown]
  - Eye disorder [Unknown]

NARRATIVE: CASE EVENT DATE: 2020
